FAERS Safety Report 6862736-2 (Version None)
Quarter: 2010Q3

REPORT INFORMATION
  Report Type: 
  Country: None (occurrence: None)
  Receive Date: 20100719
  Receipt Date: 20100708
  Transmission Date: 20110219
  Serious: Yes (Death, Life-Threatening)
  Sender: FDA-Public Use
  Company Number: LEO-2010-00587

PATIENT
  Age: 81 Year
  Sex: Male

DRUGS (3)
  1. INNOHEP [Suspect]
     Indication: CEREBROVASCULAR ACCIDENT
     Dosage: 1 IN 1 D, SUBCUTANEOUS
     Route: 058
     Dates: start: 20100410, end: 20100413
  2. PLAVIX [Suspect]
     Indication: PRODUCT USED FOR UNKNOWN INDICATION
     Dosage: ORAL
     Route: 048
     Dates: end: 20100413
  3. KARDEGIC (ACETYLSALICYLATE LYSINE) (75 MILLIGRAM) [Suspect]
     Indication: PRODUCT USED FOR UNKNOWN INDICATION
     Dosage: ORAL
     Route: 048
     Dates: end: 20100413

REACTIONS (4)
  - CEREBROVASCULAR ACCIDENT [None]
  - DISEASE RECURRENCE [None]
  - OFF LABEL USE [None]
  - SUBDURAL HAEMATOMA [None]
